FAERS Safety Report 19947546 (Version 1)
Quarter: 2021Q4

REPORT INFORMATION
  Report Type: Spontaneous
  Country: FR (occurrence: FR)
  Receive Date: 20211012
  Receipt Date: 20211012
  Transmission Date: 20220303
  Serious: Yes (Life-Threatening, Other)
  Sender: FDA-Public Use
  Company Number: FR-ABBVIE-21K-056-4115987-00

PATIENT
  Age: 2 Year
  Sex: Male
  Weight: 10 kg

DRUGS (6)
  1. VALPROATE SODIUM [Suspect]
     Active Substance: VALPROATE SODIUM
     Indication: Product administration error
     Route: 048
     Dates: start: 20190113, end: 20190113
  2. BACLOFEN [Suspect]
     Active Substance: BACLOFEN
     Indication: Product administration error
     Route: 048
     Dates: start: 20190113, end: 20190113
  3. ZONISAMIDE [Suspect]
     Active Substance: ZONISAMIDE
     Indication: Product administration error
     Route: 048
     Dates: start: 20190113, end: 20190113
  4. DIAZEPAM [Suspect]
     Active Substance: DIAZEPAM
     Indication: Product administration error
     Dosage: 3 GTT DROPS
     Route: 048
     Dates: start: 20190113, end: 20190113
  5. AMITRIPTYLINE HYDROCHLORIDE [Suspect]
     Active Substance: AMITRIPTYLINE HYDROCHLORIDE
     Indication: Product administration error
     Dosage: 1 GTT DROPS,
     Route: 048
     Dates: start: 20190113, end: 20190113
  6. LAMOTRIGINE [Suspect]
     Active Substance: LAMOTRIGINE
     Indication: Product administration error
     Route: 048
     Dates: start: 20190113, end: 20190113

REACTIONS (4)
  - Apnoea [Recovered/Resolved]
  - Respiratory distress [Recovered/Resolved]
  - Wrong patient received product [Unknown]
  - Coma [Recovered/Resolved]

NARRATIVE: CASE EVENT DATE: 20190113
